FAERS Safety Report 4852567-7 (Version None)
Quarter: 2005Q4

REPORT INFORMATION
  Report Type: 
  Country: None (occurrence: None)
  Receive Date: 20051213
  Receipt Date: 20051130
  Transmission Date: 20060501
  Serious: Yes (Hospitalization)
  Sender: FDA-Public Use
  Company Number: PHRM2005FR03153

PATIENT
  Age: 70 Year
  Sex: Female

DRUGS (2)
  1. NISISCO [Suspect]
     Indication: HYPERTENSION
     Route: 048
     Dates: start: 20050501, end: 20050827
  2. ZOCOR [Concomitant]
     Route: 048

REACTIONS (4)
  - COUGH [None]
  - DYSPNOEA EXERTIONAL [None]
  - INTERSTITIAL LUNG DISEASE [None]
  - PULMONARY FUNCTION TEST DECREASED [None]
